FAERS Safety Report 24770745 (Version 1)
Quarter: 2024Q4

REPORT INFORMATION
  Report Type: Spontaneous
  Country: US (occurrence: None)
  Receive Date: 20241223
  Receipt Date: 20241223
  Transmission Date: 20250114
  Serious: No
  Sender: Public
  Company Number: None

PATIENT
  Age: 70 Year
  Sex: Male

DRUGS (1)
  1. DOCUSATE SODIUM [Suspect]
     Active Substance: DOCUSATE SODIUM
     Indication: Constipation
     Dosage: 5 ML DAILY ORAL ?
     Route: 048

REACTIONS (2)
  - Throat irritation [None]
  - Wrong technique in product usage process [None]

NARRATIVE: CASE EVENT DATE: 20241207
